FAERS Safety Report 21550608 (Version 1)
Quarter: 2022Q4

REPORT INFORMATION
  Report Type: Report from Study
  Country: CA (occurrence: CA)
  Receive Date: 20221103
  Receipt Date: 20221103
  Transmission Date: 20230113
  Serious: Yes (Other)
  Sender: FDA-Public Use
  Company Number: CA-JNJFOC-20221056495

PATIENT
  Age: 52 Year
  Sex: Female

DRUGS (2)
  1. RYBREVANT [Suspect]
     Active Substance: AMIVANTAMAB-VMJW
     Indication: Neoplasm malignant
     Route: 042
     Dates: start: 20221024
  2. RYBREVANT [Suspect]
     Active Substance: AMIVANTAMAB-VMJW
     Route: 042
     Dates: start: 20221025

REACTIONS (3)
  - Infusion related reaction [Unknown]
  - Hypersensitivity [Unknown]
  - Vascular pain [Unknown]

NARRATIVE: CASE EVENT DATE: 20221024
